FAERS Safety Report 9697047 (Version 1)
Quarter: 2013Q4

REPORT INFORMATION
  Report Type: Spontaneous
  Country: BD (occurrence: BD)
  Receive Date: 20131120
  Receipt Date: 20131120
  Transmission Date: 20140711
  Serious: Yes (Death)
  Sender: FDA-Public Use
  Company Number: BD-ROCHE-1306394

PATIENT
  Age: 32 Year
  Sex: Male

DRUGS (1)
  1. MABTHERA [Suspect]
     Indication: NON-HODGKIN^S LYMPHOMA
     Dosage: 6 CYCLES
     Route: 042
     Dates: start: 20130515, end: 20130914

REACTIONS (1)
  - Death [Fatal]
